FAERS Safety Report 25329895 (Version 2)
Quarter: 2025Q2

REPORT INFORMATION
  Report Type: Spontaneous
  Country: PL (occurrence: PL)
  Receive Date: 20250519
  Receipt Date: 20250603
  Transmission Date: 20250716
  Serious: Yes (Other)
  Sender: AMGEN
  Company Number: PL-AMGEN-POLSP2025094921

PATIENT

DRUGS (1)
  1. PROLIA [Suspect]
     Active Substance: DENOSUMAB
     Indication: Product used for unknown indication
     Route: 065
     Dates: start: 20240507

REACTIONS (3)
  - Pathological fracture [Unknown]
  - Femoral neck fracture [Unknown]
  - Renal failure [Unknown]

NARRATIVE: CASE EVENT DATE: 20241201
